FAERS Safety Report 17534572 (Version 1)
Quarter: 2020Q1

REPORT INFORMATION
  Report Type: Spontaneous
  Country: CN (occurrence: CN)
  Receive Date: 20200312
  Receipt Date: 20200312
  Transmission Date: 20200409
  Serious: Yes (Hospitalization, Other)
  Sender: FDA-Public Use
  Company Number: CN-ABBVIE-20K-035-3308446-00

PATIENT
  Age: 56 Year
  Sex: Female
  Weight: 56 kg

DRUGS (10)
  1. ARBIDOL [Suspect]
     Active Substance: UMIFENOVIR
     Indication: PNEUMONIA VIRAL
     Route: 048
     Dates: end: 20200218
  2. INTERFERON ALFA-2A RECOMBINANT [Concomitant]
     Active Substance: INTERFERON ALFA-2A
     Indication: CORONA VIRUS INFECTION
     Route: 055
     Dates: start: 20200202, end: 20200214
  3. ARBIDOL [Suspect]
     Active Substance: UMIFENOVIR
     Indication: CORONA VIRUS INFECTION
  4. METHYLPREDNISOLONE SODIUM SUCCINATE. [Concomitant]
     Active Substance: METHYLPREDNISOLONE SODIUM SUCCINATE
     Indication: PNEUMONIA VIRAL
  5. ALUVIA 200/50 [Suspect]
     Active Substance: LOPINAVIR\RITONAVIR
     Indication: PNEUMONIA VIRAL
     Route: 048
     Dates: start: 20200202, end: 20200218
  6. ALUVIA 200/50 [Suspect]
     Active Substance: LOPINAVIR\RITONAVIR
     Indication: CORONA VIRUS INFECTION
  7. THYMALFASIN [Concomitant]
     Active Substance: THYMALFASIN
     Indication: CORONA VIRUS INFECTION
     Route: 058
     Dates: start: 20200211, end: 20200224
  8. THYMALFASIN [Concomitant]
     Active Substance: THYMALFASIN
     Indication: PNEUMONIA VIRAL
  9. METHYLPREDNISOLONE SODIUM SUCCINATE. [Concomitant]
     Active Substance: METHYLPREDNISOLONE SODIUM SUCCINATE
     Indication: CORONA VIRUS INFECTION
     Route: 041
     Dates: start: 20200214, end: 20200221
  10. INTERFERON ALFA-2A RECOMBINANT [Concomitant]
     Active Substance: INTERFERON ALFA-2A
     Indication: PNEUMONIA VIRAL

REACTIONS (2)
  - Rash erythematous [Recovered/Resolved]
  - Off label use [Unknown]

NARRATIVE: CASE EVENT DATE: 20200202
